FAERS Safety Report 16016319 (Version 1)
Quarter: 2019Q1

REPORT INFORMATION
  Report Type: Spontaneous
  Country: US (occurrence: US)
  Receive Date: 20190228
  Receipt Date: 20190228
  Transmission Date: 20190418
  Serious: Yes (Hospitalization, Other)
  Sender: FDA-Public Use
  Company Number: US-SA-2019SA036372

PATIENT
  Age: 77 Year
  Sex: Male

DRUGS (11)
  1. RANEXA [Concomitant]
     Active Substance: RANOLAZINE
  2. METRONIDAZOLE. [Concomitant]
     Active Substance: METRONIDAZOLE
  3. PRALUENT [Suspect]
     Active Substance: ALIROCUMAB
     Dosage: 75 MG, QOW
     Route: 058
  4. PRAVASTATIN SODIUM. [Concomitant]
     Active Substance: PRAVASTATIN SODIUM
  5. DIGOX [ACETYLDIGOXIN] [Concomitant]
  6. ESOMEPRAZOLE MAGNESIUM. [Concomitant]
     Active Substance: ESOMEPRAZOLE MAGNESIUM
  7. CIPROFLOXACIN HYDROCHLORIDE. [Concomitant]
     Active Substance: CIPROFLOXACIN HYDROCHLORIDE
  8. CLINDAMYCIN HYDROCHLORIDE. [Concomitant]
     Active Substance: CLINDAMYCIN HYDROCHLORIDE
  9. VASCEPA [Concomitant]
     Active Substance: ICOSAPENT ETHYL
  10. RAMIPRIL. [Concomitant]
     Active Substance: RAMIPRIL
  11. CIALIS [Concomitant]
     Active Substance: TADALAFIL

REACTIONS (2)
  - Large intestine perforation [Unknown]
  - Bile duct stone [Unknown]
